FAERS Safety Report 19724023 (Version 2)
Quarter: 2021Q4

REPORT INFORMATION
  Report Type: Spontaneous
  Country: NZ (occurrence: NZ)
  Receive Date: 20210820
  Receipt Date: 20211011
  Transmission Date: 20220303
  Serious: Yes (Death)
  Sender: FDA-Public Use
  Company Number: NZ-ROCHE-2893170

PATIENT
  Age: 42 Year
  Sex: Female

DRUGS (1)
  1. ROZLYTREK [Suspect]
     Active Substance: ENTRECTINIB
     Indication: Lung neoplasm malignant
     Route: 048
     Dates: start: 20210810, end: 20210817

REACTIONS (1)
  - Neurological decompensation [Fatal]

NARRATIVE: CASE EVENT DATE: 20210817
